FAERS Safety Report 10684386 (Version 2)
Quarter: 2015Q1

REPORT INFORMATION
  Report Type: Spontaneous
  Country: US (occurrence: None)
  Receive Date: 20141229
  Receipt Date: 20150106
  Transmission Date: 20150720
  Serious: Yes (Other)
  Sender: FDA-Public Use
  Company Number: 2014-US-016692

PATIENT
  Sex: Female
  Weight: 88.4 kg

DRUGS (11)
  1. CONCERTA [Suspect]
     Active Substance: METHYLPHENIDATE HYDROCHLORIDE
     Indication: PRODUCT USED FOR UNKNOWN INDICATION
     Route: 048
     Dates: end: 201306
  2. METHYLPHENIDATE HYDROCHLORIDE. [Suspect]
     Active Substance: METHYLPHENIDATE HYDROCHLORIDE
     Indication: SOMNOLENCE
     Route: 048
     Dates: start: 201302, end: 2013
  3. BENADRYL (DIPHENYDRAMINE HYDROCHLORIDE) [Concomitant]
  4. TYLENOL [Concomitant]
     Active Substance: ACETAMINOPHEN
  5. VENTOLIN (SALBUTEROL SULFATE) [Concomitant]
  6. XYREM [Suspect]
     Active Substance: SODIUM OXYBATE
     Indication: NARCOLEPSY
     Route: 048
     Dates: start: 20140114, end: 2014
  7. XYREM [Suspect]
     Active Substance: SODIUM OXYBATE
     Indication: CATAPLEXY
     Route: 048
     Dates: start: 20140114, end: 2014
  8. MINOCIN (MINOCYCLINE HYDROCHLORIDE) [Concomitant]
  9. PROZAC [Suspect]
     Active Substance: FLUOXETINE HYDROCHLORIDE
     Indication: CATAPLEXY
     Route: 048
     Dates: start: 20131114, end: 2014
  10. DIFFERIN [Concomitant]
     Active Substance: ADAPALENE
  11. SINGULAIR [Concomitant]
     Active Substance: MONTELUKAST SODIUM

REACTIONS (6)
  - Insomnia [None]
  - Somnolence [None]
  - Alanine aminotransferase increased [None]
  - Aspartate aminotransferase increased [None]
  - Transaminases increased [None]
  - Anxiety [None]

NARRATIVE: CASE EVENT DATE: 2014
